FAERS Safety Report 8844588 (Version 2)
Quarter: 2012Q4

REPORT INFORMATION
  Report Type: 
  Country: US (occurrence: US)
  Receive Date: 20121017
  Receipt Date: 20121107
  Transmission Date: 20130627
  Serious: Yes (Life-Threatening, Disabling)
  Sender: FDA-Public Use
  Company Number: US-009507513-1210USA006936

PATIENT
  Age: 56 Year
  Sex: Female

DRUGS (5)
  1. DULERA [Suspect]
     Indication: ASTHMA
     Dosage: 200/5, 2 DF, bid
     Route: 055
     Dates: start: 201110
  2. DULERA [Suspect]
     Dosage: 2 DF, bid
     Route: 055
  3. CICLESONIDE [Concomitant]
  4. PULMICORT [Concomitant]
  5. ALLERGENIC EXTRACT [Suspect]
     Indication: HYPERSENSITIVITY

REACTIONS (5)
  - Heart rate increased [Recovered/Resolved]
  - Tremor [Recovered/Resolved]
  - Blood pressure increased [Recovered/Resolved]
  - Respiratory tract infection [Unknown]
  - Drug intolerance [None]
